FAERS Safety Report 7423804-X (Version None)
Quarter: 2011Q2

REPORT INFORMATION
  Report Type: 
  Country: None (occurrence: None)
  Receive Date: 20110419
  Receipt Date: 20110408
  Transmission Date: 20111010
  Serious: Yes (Other)
  Sender: FDA-Public Use
  Company Number: PHHY2011US04480

PATIENT
  Sex: Female

DRUGS (3)
  1. PAXIL [Concomitant]
     Dosage: UNK
     Route: 048
  2. VITAMINS [Concomitant]
     Dosage: UNK
  3. GILENYA [Suspect]
     Indication: RELAPSING-REMITTING MULTIPLE SCLEROSIS
     Dosage: 0.5 MG, QD
     Route: 048
     Dates: start: 20110107

REACTIONS (5)
  - SPINAL CORD INJURY CERVICAL [None]
  - BALANCE DISORDER [None]
  - ASTHENIA [None]
  - MULTIPLE SCLEROSIS RELAPSE [None]
  - FALL [None]
